FAERS Safety Report 7034948-9 (Version None)
Quarter: 2010Q4

REPORT INFORMATION
  Report Type: 
  Country: None (occurrence: None)
  Receive Date: 20101008
  Receipt Date: 20100923
  Transmission Date: 20110411
  Serious: Yes (Death)
  Sender: FDA-Public Use
  Company Number: GR-ROCHE-729953

PATIENT
  Sex: Male

DRUGS (1)
  1. HERCEPTIN [Suspect]
     Route: 065
     Dates: start: 20100101, end: 20100101

REACTIONS (1)
  - DISEASE PROGRESSION [None]
